FAERS Safety Report 7098407-X (Version None)
Quarter: 2010Q4

REPORT INFORMATION
  Report Type: 
  Country: None (occurrence: None)
  Receive Date: 20101110
  Receipt Date: 20101110
  Transmission Date: 20110411
  Serious: Yes (Other)
  Sender: FDA-Public Use
  Company Number: None

PATIENT
  Sex: Male
  Weight: 113.3993 kg

DRUGS (1)
  1. HUMULIN N [Suspect]
     Indication: DIABETES MELLITUS
     Dosage: 55 UNITS TWICE DAILY SQ
     Route: 058
     Dates: start: 20101028, end: 20101029

REACTIONS (1)
  - DIABETES MELLITUS INADEQUATE CONTROL [None]
